FAERS Safety Report 16701382 (Version 2)
Quarter: 2019Q3

REPORT INFORMATION
  Report Type: Spontaneous
  Country: PT (occurrence: PT)
  Receive Date: 20190814
  Receipt Date: 20190903
  Transmission Date: 20191004
  Serious: Yes (Hospitalization)
  Sender: FDA-Public Use
  Company Number: PT-BAYER-2019-145711

PATIENT
  Age: 26 Year
  Sex: Female

DRUGS (1)
  1. JAYDESS [Suspect]
     Active Substance: LEVONORGESTREL
     Indication: CONTRACEPTION
     Dosage: 14 MCG/24HR, CONT
     Route: 015
     Dates: start: 20190228

REACTIONS (6)
  - Migraine [None]
  - Eyelid ptosis [None]
  - Depression [None]
  - Hypoaesthesia [None]
  - Euphoric mood [None]
  - Vision blurred [None]

NARRATIVE: CASE EVENT DATE: 20190228
